FAERS Safety Report 11795413 (Version 1)
Quarter: 2015Q4

REPORT INFORMATION
  Report Type: Spontaneous
  Country: US (occurrence: US)
  Receive Date: 20151202
  Receipt Date: 20151202
  Transmission Date: 20160305
  Serious: No
  Sender: FDA-Public Use
  Company Number: US-SA-2015SA128040

PATIENT
  Age: 57 Year
  Sex: Male

DRUGS (9)
  1. LISINOPRIL. [Concomitant]
     Active Substance: LISINOPRIL
     Indication: HYPERTENSION
  2. CERDELGA [Suspect]
     Active Substance: ELIGLUSTAT
     Indication: GAUCHER^S DISEASE TYPE I
     Route: 065
     Dates: start: 20150109, end: 20150804
  3. ASPIRIN. [Concomitant]
     Active Substance: ASPIRIN
  4. ALLOPURINOL. [Concomitant]
     Active Substance: ALLOPURINOL
     Indication: GOUT
  5. ONDANSETRON [Concomitant]
     Active Substance: ONDANSETRON
     Indication: NAUSEA
  6. CERDELGA [Suspect]
     Active Substance: ELIGLUSTAT
     Indication: GAUCHER^S DISEASE TYPE I
     Route: 065
     Dates: start: 2015, end: 201508
  7. PEPCID [Concomitant]
     Active Substance: FAMOTIDINE
     Indication: GASTROOESOPHAGEAL REFLUX DISEASE
  8. CERDELGA [Suspect]
     Active Substance: ELIGLUSTAT
     Indication: GAUCHER^S DISEASE TYPE I
     Route: 065
     Dates: start: 20150403
  9. PRILOSEC [Concomitant]
     Active Substance: OMEPRAZOLE MAGNESIUM
     Dates: start: 2015

REACTIONS (10)
  - Nausea [Recovered/Resolved]
  - Retching [Recovered/Resolved]
  - Chest discomfort [Recovered/Resolved]
  - Blood urea increased [Recovered/Resolved]
  - Platelet count decreased [Recovered/Resolved]
  - Abdominal discomfort [Recovered/Resolved]
  - Dehydration [Recovered/Resolved]
  - Abdominal distension [Recovered/Resolved]
  - Orthostatic hypotension [Recovered/Resolved]
  - Dizziness [Recovered/Resolved]

NARRATIVE: CASE EVENT DATE: 2015
